FAERS Safety Report 10284664 (Version 1)
Quarter: 2014Q3

REPORT INFORMATION
  Report Type: Report from Study
  Country: ES (occurrence: ES)
  Receive Date: 20140708
  Receipt Date: 20140708
  Transmission Date: 20150326
  Serious: Yes (Other)
  Sender: FDA-Public Use
  Company Number: ES-VERTEX PHARMACEUTICALS (CANADA)-2014-002984

PATIENT

DRUGS (3)
  1. RIBAVIRIN. [Suspect]
     Active Substance: RIBAVIRIN
     Indication: HEPATITIS C
     Route: 065
  2. TELAPREVIR [Suspect]
     Active Substance: TELAPREVIR
     Indication: HEPATITIS C
     Dosage: UNK
     Route: 065
  3. INTERFERON NOS [Suspect]
     Active Substance: INTERFERON
     Indication: HEPATITIS C
     Route: 065

REACTIONS (18)
  - Depression [Unknown]
  - Conjunctivitis [Unknown]
  - Neutropenia [Unknown]
  - Erythema [Unknown]
  - Rash pruritic [Unknown]
  - Condition aggravated [Unknown]
  - Drug ineffective [Unknown]
  - Adverse event [Unknown]
  - Gastrointestinal disorder [Unknown]
  - Rash [Unknown]
  - Respiratory tract infection [Unknown]
  - Headache [Unknown]
  - Asthenia [Unknown]
  - Treatment noncompliance [Unknown]
  - Abscess [Unknown]
  - Pancreatitis acute [Unknown]
  - Thrombocytopenia [Unknown]
  - Anaemia [Unknown]
